FAERS Safety Report 4916541-4 (Version None)
Quarter: 2006Q1

REPORT INFORMATION
  Report Type: 
  Country: None (occurrence: None)
  Receive Date: 20060220
  Receipt Date: 20060213
  Transmission Date: 20060701
  Serious: Yes (Hospitalization)
  Sender: FDA-Public Use
  Company Number: JP-SP-2006-00349

PATIENT
  Age: 59 Year
  Sex: Male

DRUGS (1)
  1. IMMUCYST [Suspect]
     Route: 043
     Dates: start: 20051207, end: 20060201

REACTIONS (3)
  - ARTHRALGIA [None]
  - PYREXIA [None]
  - REITER'S SYNDROME [None]
